FAERS Safety Report 16295868 (Version 1)
Quarter: 2019Q2

REPORT INFORMATION
  Report Type: Spontaneous
  Country: BE (occurrence: BE)
  Receive Date: 20190510
  Receipt Date: 20190510
  Transmission Date: 20190711
  Serious: Yes (Hospitalization, Other)
  Sender: FDA-Public Use
  Company Number: BE-JNJFOC-20190508882

PATIENT
  Sex: Female

DRUGS (4)
  1. CORDARONE [Concomitant]
     Active Substance: AMIODARONE HYDROCHLORIDE
     Route: 065
     Dates: start: 201503
  2. NOBITEN [Concomitant]
     Active Substance: NEBIVOLOL
     Route: 065
     Dates: start: 201503
  3. BISOPROLOL [Concomitant]
     Active Substance: BISOPROLOL
     Route: 065
  4. XARELTO [Suspect]
     Active Substance: RIVAROXABAN
     Indication: ATRIAL FIBRILLATION
     Route: 048
     Dates: start: 201503

REACTIONS (8)
  - Colon cancer [Unknown]
  - Blood loss anaemia [Unknown]
  - Cardiac failure [Unknown]
  - Metastases to liver [Unknown]
  - Metastases to liver [Unknown]
  - Atrial enlargement [Unknown]
  - Dyspnoea [Unknown]
  - Gastrointestinal haemorrhage [Unknown]

NARRATIVE: CASE EVENT DATE: 201505
